FAERS Safety Report 9059149 (Version 1)
Quarter: 2013Q1

REPORT INFORMATION
  Report Type: Spontaneous
  Country: US (occurrence: US)
  Receive Date: 20130211
  Receipt Date: 20130211
  Transmission Date: 20140127
  Serious: No
  Sender: FDA-Public Use
  Company Number: US-BRISTOL-MYERS SQUIBB COMPANY-17031733

PATIENT
  Sex: Female

DRUGS (3)
  1. GLUCOPHAGE [Suspect]
     Indication: TYPE 2 DIABETES MELLITUS
     Dosage: 2TABS ?AT BED TIME
     Route: 048
  2. VICTOZA [Suspect]
  3. AMARYL [Suspect]

REACTIONS (1)
  - Diabetes mellitus inadequate control [Not Recovered/Not Resolved]
